FAERS Safety Report 9293985 (Version 1)
Quarter: 2013Q1

REPORT INFORMATION
  Report Type: Spontaneous
  Country: US (occurrence: None)
  Receive Date: 20121217
  Receipt Date: 20121217
  Transmission Date: 20140127
  Serious: Yes (Other)
  Sender: FDA-Public Use
  Company Number: PHEH2012US012631

PATIENT
  Sex: Female

DRUGS (1)
  1. EXFORGE  HCT [Suspect]
     Dosage: UNK

REACTIONS (1)
  - Blood pressure abnormal [None]
